FAERS Safety Report 9819619 (Version 1)
Quarter: 2014Q1

REPORT INFORMATION
  Report Type: Spontaneous
  Country: US (occurrence: None)
  Receive Date: 20140113
  Receipt Date: 20140113
  Transmission Date: 20141002
  Serious: Yes (Other)
  Sender: FDA-Public Use
  Company Number: CPI 5445

PATIENT
  Age: 59 Year
  Sex: Male
  Weight: 98 kg

DRUGS (3)
  1. N-ACETYLCYSTEINE [Suspect]
     Indication: TOXICITY TO VARIOUS AGENTS
     Dosage: 150MG/KG 15 MIN, 70 MK/K
  2. VITAMIN K 10 MG [Concomitant]
  3. D10W 50CC/H IV [Concomitant]

REACTIONS (2)
  - Pneumonia pneumococcal [None]
  - Haemodialysis [None]
